FAERS Safety Report 10417055 (Version 3)
Quarter: 2014Q3

REPORT INFORMATION
  Report Type: Spontaneous
  Country: GB (occurrence: GB)
  Receive Date: 20140828
  Receipt Date: 20140905
  Transmission Date: 20150326
  Serious: Yes (Disabling)
  Sender: FDA-Public Use
  Company Number: GB-BAUSCH-SYM-2014-21464

PATIENT
  Age: 92 Year
  Sex: Female
  Weight: 58 kg

DRUGS (6)
  1. VISUDYNE [Suspect]
     Active Substance: VERTEPORFIN
     Indication: AGE-RELATED MACULAR DEGENERATION
     Route: 042
  2. SERTRALINE [Concomitant]
     Active Substance: SERTRALINE HYDROCHLORIDE
     Indication: PRODUCT USED FOR UNKNOWN INDICATION
  3. VISUDYNE [Suspect]
     Active Substance: VERTEPORFIN
     Route: 042
     Dates: start: 20140218
  4. ICAPS [Concomitant]
     Active Substance: MINERALS\VITAMINS
     Indication: PRODUCT USED FOR UNKNOWN INDICATION
  5. DILTIAZEM [Concomitant]
     Active Substance: DILTIAZEM
     Indication: PRODUCT USED FOR UNKNOWN INDICATION
  6. ASPIRIN. [Concomitant]
     Active Substance: ASPIRIN
     Indication: PRODUCT USED FOR UNKNOWN INDICATION

REACTIONS (3)
  - Neutrophil count decreased [Unknown]
  - Visual acuity reduced [Recovering/Resolving]
  - Blindness [Recovering/Resolving]

NARRATIVE: CASE EVENT DATE: 20140218
